FAERS Safety Report 21439829 (Version 2)
Quarter: 2022Q4

REPORT INFORMATION
  Report Type: Other
  Country: US (occurrence: US)
  Receive Date: 20221011
  Receipt Date: 20221222
  Transmission Date: 20230112
  Serious: Yes (Hospitalization, Other)
  Sender: FDA-Public Use
  Company Number: US-Covis Pharma GmbH-2022COV21963

PATIENT
  Age: 31 Year
  Sex: Female
  Weight: 86.260 kg

DRUGS (4)
  1. MAKENA [Suspect]
     Active Substance: HYDROXYPROGESTERONE CAPROATE
     Indication: Premature delivery
     Route: 030
     Dates: start: 20220606, end: 20220919
  2. LOVENOX [Concomitant]
     Active Substance: ENOXAPARIN SODIUM
     Indication: Methylenetetrahydrofolate reductase gene mutation
     Dosage: TOD
     Dates: start: 20220502, end: 20220920
  3. ASPIRIN [Concomitant]
     Active Substance: ASPIRIN
     Indication: Methylenetetrahydrofolate reductase gene mutation
  4. HEPARIN [Concomitant]
     Active Substance: HEPARIN SODIUM
     Indication: Delivery
     Dosage: BID
     Dates: start: 20220920, end: 20220928

REACTIONS (2)
  - Preterm premature rupture of membranes [Recovered/Resolved]
  - Premature delivery [Recovered/Resolved]

NARRATIVE: CASE EVENT DATE: 20220920
